FAERS Safety Report 5589609-X (Version None)
Quarter: 2008Q1

REPORT INFORMATION
  Report Type: 
  Country: None (occurrence: None)
  Receive Date: 20080114
  Receipt Date: 20080109
  Transmission Date: 20080703
  Serious: Yes (Disabling)
  Sender: FDA-Public Use
  Company Number: A0702196A

PATIENT
  Age: 59 Year
  Sex: Male

DRUGS (5)
  1. LAMICTAL [Suspect]
     Dosage: 50MG PER DAY
     Route: 048
  2. KLONOPIN [Concomitant]
  3. TPN [Concomitant]
  4. AMINO ACIDS [Concomitant]
  5. FIORICET [Concomitant]

REACTIONS (5)
  - DYSPNOEA [None]
  - FEELING ABNORMAL [None]
  - HYPERSENSITIVITY [None]
  - NASAL CONGESTION [None]
  - PRESYNCOPE [None]
